FAERS Safety Report 5946629-0 (Version None)
Quarter: 2008Q4

REPORT INFORMATION
  Report Type: 
  Country: None (occurrence: None)
  Receive Date: 20081110
  Receipt Date: 20081105
  Transmission Date: 20090506
  Serious: Yes (Other)
  Sender: FDA-Public Use
  Company Number: US-BIOGENIDEC-2008BI018780

PATIENT
  Age: 60 Year
  Sex: Female
  Weight: 110 kg

DRUGS (1)
  1. TYSABRI [Suspect]
     Indication: MULTIPLE SCLEROSIS
     Route: 042
     Dates: start: 20080301

REACTIONS (6)
  - APHASIA [None]
  - CHRONIC OBSTRUCTIVE PULMONARY DISEASE [None]
  - FACIAL PALSY [None]
  - FATIGUE [None]
  - PETIT MAL EPILEPSY [None]
  - RASH PAPULAR [None]
